FAERS Safety Report 13284354 (Version 1)
Quarter: 2017Q1

REPORT INFORMATION
  Report Type: Spontaneous
  Country: US (occurrence: US)
  Receive Date: 20170301
  Receipt Date: 20170301
  Transmission Date: 20170428
  Serious: No
  Sender: FDA-Public Use
  Company Number: US-INSYS THERAPEUTICS, INC-INS201610-000623

PATIENT
  Sex: Female

DRUGS (5)
  1. FENTANYL TRANSDERMAL SYSTEM [Concomitant]
     Active Substance: FENTANYL
  2. HYDROMORPHONE [Concomitant]
     Active Substance: HYDROMORPHONE
  3. SUBSYS [Suspect]
     Active Substance: FENTANYL
     Indication: BREAKTHROUGH PAIN
  4. OXYCODONE [Concomitant]
     Active Substance: OXYCODONE
  5. HYDROCODONE ER [Concomitant]
     Active Substance: HYDROCODONE BITARTRATE

REACTIONS (1)
  - Burning sensation [Unknown]
